FAERS Safety Report 15153836 (Version 1)
Quarter: 2018Q3

REPORT INFORMATION
  Report Type: Spontaneous
  Country: US (occurrence: US)
  Receive Date: 20180717
  Receipt Date: 20180717
  Transmission Date: 20181010
  Serious: No
  Sender: FDA-Public Use
  Company Number: US-SA-2018SA192071

PATIENT
  Age: 44 Year
  Sex: Male
  Weight: 104.31 kg

DRUGS (1)
  1. DUPIXENT [Suspect]
     Active Substance: DUPILUMAB
     Indication: DERMATITIS ATOPIC
     Dosage: INJECT 300 MG UNDER THE SKIN, QOW
     Dates: start: 201804

REACTIONS (1)
  - Injection site pain [Unknown]
